FAERS Safety Report 7000138-9 (Version None)
Quarter: 2010Q3

REPORT INFORMATION
  Report Type: 
  Country: None (occurrence: None)
  Receive Date: 20100920
  Receipt Date: 20100302
  Transmission Date: 20110219
  Serious: No
  Sender: FDA-Public Use
  Company Number: US-ASTRAZENECA-2010SE09052

PATIENT
  Age: 40 Year
  Sex: Female
  Weight: 90.7 kg

DRUGS (4)
  1. SEROQUEL [Suspect]
     Indication: BIPOLAR DISORDER
     Route: 048
     Dates: start: 20080101
  2. LITHIUM [Concomitant]
  3. WELLBUTRIN [Concomitant]
  4. RISPERDAL [Concomitant]

REACTIONS (4)
  - DRUG DOSE OMISSION [None]
  - FEELING JITTERY [None]
  - INSOMNIA [None]
  - NAUSEA [None]
